FAERS Safety Report 13261033 (Version 1)
Quarter: 2017Q1

REPORT INFORMATION
  Report Type: Report from Study
  Country: FR (occurrence: FR)
  Receive Date: 20170222
  Receipt Date: 20170222
  Transmission Date: 20170428
  Serious: Yes (Other)
  Sender: FDA-Public Use
  Company Number: FR-TEVA-741933ISR

PATIENT
  Age: 44 Year
  Sex: Male

DRUGS (5)
  1. ALPRAZOLAM. [Suspect]
     Active Substance: ALPRAZOLAM
     Route: 065
  2. TETRAZEPAM [Suspect]
     Active Substance: TETRAZEPAM
     Dosage: 18 TABLETS/DAY
     Route: 065
  3. PARACETAMOL/CODEINE [Suspect]
     Active Substance: ACETAMINOPHEN\CODEINE PHOSPHATE
     Dosage: 24 TABLETS/DAY
     Route: 065
  4. ZOLPIDEM [Suspect]
     Active Substance: ZOLPIDEM\ZOLPIDEM TARTRATE
     Dosage: 30 TABLETS/DAY
     Route: 065
  5. PREGABALIN. [Suspect]
     Active Substance: PREGABALIN
     Dosage: 18 CAPSULES/DAY
     Route: 065

REACTIONS (5)
  - Drug dependence [Unknown]
  - Drug abuse [Unknown]
  - Deafness [Unknown]
  - Alopecia [Unknown]
  - Somnolence [Unknown]

NARRATIVE: CASE EVENT DATE: 2012
